FAERS Safety Report 8817065 (Version 1)
Quarter: 2012Q4

REPORT INFORMATION
  Report Type: Spontaneous
  Country: US (occurrence: None)
  Receive Date: 20121003
  Receipt Date: 20121003
  Transmission Date: 20130627
  Serious: No
  Sender: FDA-Public Use
  Company Number: None

PATIENT
  Sex: Male

DRUGS (1)
  1. ENBREL 50 AMGEN [Suspect]
     Indication: PSORIASIS
     Route: 058
     Dates: start: 20120815

REACTIONS (2)
  - Fatigue [None]
  - Hypotension [None]
